FAERS Safety Report 14531532 (Version 1)
Quarter: 2018Q1

REPORT INFORMATION
  Report Type: Spontaneous
  Country: US (occurrence: US)
  Receive Date: 20180214
  Receipt Date: 20180214
  Transmission Date: 20180509
  Serious: Yes (Life-Threatening, Hospitalization, Other)
  Sender: FDA-Public Use
  Company Number: US-BRISTOL-MYERS SQUIBB COMPANY-BMS-2018-010883

PATIENT
  Age: 65 Year
  Sex: Female
  Weight: 78 kg

DRUGS (5)
  1. COUMADIN [Suspect]
     Active Substance: WARFARIN SODIUM
     Indication: PRODUCT USED FOR UNKNOWN INDICATION
     Dosage: UNK
     Route: 065
  2. TREPROSTINIL [Suspect]
     Active Substance: TREPROSTINIL
     Indication: PULMONARY HYPERTENSION
     Dosage: 1 DF, QID
     Route: 050
     Dates: start: 20170420
  3. TREPROSTINIL [Suspect]
     Active Substance: TREPROSTINIL
     Indication: PRODUCT USED FOR UNKNOWN INDICATION
     Dosage: 54 ?G, QID
     Route: 050
  4. OPSUMIT [Concomitant]
     Active Substance: MACITENTAN
     Indication: PRODUCT USED FOR UNKNOWN INDICATION
     Dosage: UNK
     Route: 065
  5. TREPROSTINIL [Suspect]
     Active Substance: TREPROSTINIL
     Indication: PRODUCT USED FOR UNKNOWN INDICATION
     Dosage: UNK
     Route: 050

REACTIONS (9)
  - Pneumonia [Unknown]
  - Ear infection [Unknown]
  - Drug interaction [Unknown]
  - Nausea [Unknown]
  - Sinus headache [Unknown]
  - Cerebral haemorrhage [Unknown]
  - Cerebrovascular accident [Unknown]
  - Sinusitis [Unknown]
  - Vomiting [Unknown]

NARRATIVE: CASE EVENT DATE: 2017
